FAERS Safety Report 20749021 (Version 5)
Quarter: 2022Q2

REPORT INFORMATION
  Report Type: Spontaneous
  Country: IT (occurrence: IT)
  Receive Date: 20220426
  Receipt Date: 20220624
  Transmission Date: 20220721
  Serious: Yes (Other)
  Sender: FDA-Public Use
  Company Number: IT-CELLTRION INC.-2022IT004950

PATIENT

DRUGS (10)
  1. RITUXIMAB [Suspect]
     Active Substance: RITUXIMAB
     Indication: Epstein-Barr virus associated lymphoproliferative disorder
     Dosage: 200 MG/M2 ON DAY -1
     Route: 042
  2. RITUXIMAB [Suspect]
     Active Substance: RITUXIMAB
     Indication: Prophylaxis against graft versus host disease
     Dosage: 200 MG/M2 (ON DAY 1)
  3. RITUXIMAB [Suspect]
     Active Substance: RITUXIMAB
     Indication: Prophylaxis against transplant rejection
  4. ATG-FRESENIUS [Suspect]
     Active Substance: LAPINE T-LYMPHOCYTE IMMUNE GLOBULIN
     Indication: Allogenic stem cell transplantation
     Dosage: 12 MG/KG DAYS -4 TO -2
     Route: 065
  5. ATG-FRESENIUS [Suspect]
     Active Substance: LAPINE T-LYMPHOCYTE IMMUNE GLOBULIN
     Indication: Prophylaxis against transplant rejection
  6. ATG-FRESENIUS [Suspect]
     Active Substance: LAPINE T-LYMPHOCYTE IMMUNE GLOBULIN
     Indication: Prophylaxis against graft versus host disease
  7. TREOSULFAN [Suspect]
     Active Substance: TREOSULFAN
     Indication: Prophylaxis against graft versus host disease
     Dosage: 36-42 GRAM PER SQUARE METRE TOTAL DOSE, ACCORDING TO PATIENT^S WEIGHT; DAYS -7 TO-5
     Route: 065
  8. FLUDARABINE [Suspect]
     Active Substance: FLUDARABINE PHOSPHATE
     Indication: Prophylaxis against graft versus host disease
     Dosage: 160 MG/M2 TOTAL DOSE; DAYS -7 TO -4
     Route: 065
  9. AMPHOTERICIN B [Suspect]
     Active Substance: AMPHOTERICIN B
     Indication: Antifungal prophylaxis
     Dosage: 5 MG, 1/WEEKLY, UNTIL THE FIRST 100 DAYS AFTER HSCT
  10. THIOTEPA [Suspect]
     Active Substance: THIOTEPA
     Dosage: 8 MG/KG; DAY - 4

REACTIONS (5)
  - Cytomegalovirus infection [Recovered/Resolved]
  - Staphylococcal bacteraemia [Recovered/Resolved]
  - Staphylococcal infection [Unknown]
  - Human herpesvirus 6 infection [Recovered/Resolved]
  - Off label use [Unknown]
